FAERS Safety Report 8003422-5 (Version None)
Quarter: 2011Q4

REPORT INFORMATION
  Report Type: 
  Country: None (occurrence: None)
  Receive Date: 20111222
  Receipt Date: 20111107
  Transmission Date: 20120403
  Serious: No
  Sender: FDA-Public Use
  Company Number: US-BAYER-2011-108181

PATIENT
  Age: 63 Year
  Sex: Female
  Weight: 87 kg

DRUGS (6)
  1. ALEVE-D SINUS + COLD [Suspect]
     Indication: SINUS HEADACHE
     Dosage: UNK
     Dates: start: 20010101
  2. ASCORBIC ACID [Concomitant]
  3. POTASSIUM CITRATE [Concomitant]
  4. HYDROCHLOROTHIAZIDE [Concomitant]
  5. LOVASTATIN [Concomitant]
  6. ENTERIC ASPIRIN [Concomitant]

REACTIONS (1)
  - NO ADVERSE EVENT [None]
